FAERS Safety Report 18367211 (Version 3)
Quarter: 2021Q1

REPORT INFORMATION
  Report Type: Spontaneous
  Country: US (occurrence: US)
  Receive Date: 20201009
  Receipt Date: 20210330
  Transmission Date: 20210419
  Serious: No
  Sender: FDA-Public Use
  Company Number: US-PFIZER INC-2020389977

PATIENT
  Age: 75 Year
  Sex: Female

DRUGS (2)
  1. IBRANCE [Suspect]
     Active Substance: PALBOCICLIB
     Indication: BREAST CANCER FEMALE
     Dosage: 100 MG, ALTERNATE DAY (TAKE 1 TABLET EVERY OTHER DAY)
     Route: 048
  2. IBRANCE [Suspect]
     Active Substance: PALBOCICLIB
     Dosage: 75 MG, CYCLIC (TAKE 1 TABLET (75MG TOTAL), EVERY OTHER DAY, FOR 3 WEEKS ON, ONE WEEK OFF)
     Route: 048

REACTIONS (2)
  - Off label use [Unknown]
  - Illness [Unknown]
